FAERS Safety Report 7104927-1 (Version None)
Quarter: 2010Q4

REPORT INFORMATION
  Report Type: 
  Country: None (occurrence: None)
  Receive Date: 20101109
  Receipt Date: 20100701
  Transmission Date: 20110411
  Serious: Yes (Other)
  Sender: FDA-Public Use
  Company Number: 2010AP001269

PATIENT
  Age: 47 Year
  Sex: Male

DRUGS (3)
  1. AZATHIOPRINE (AZATHIOPRINE) [Suspect]
     Indication: IMMUNOSUPPRESSANT DRUG THERAPY
     Dosage: 175 MG; QD
  2. PREDNISOLONE [Suspect]
     Indication: IMMUNOSUPPRESSANT DRUG THERAPY
     Dosage: 10 MG; QD
  3. ANTIHYPERTENSIVES (ANTIHYPERTENSIVES) [Concomitant]

REACTIONS (4)
  - EXCESSIVE GRANULATION TISSUE [None]
  - IMPAIRED HEALING [None]
  - PERIPHERAL ISCHAEMIA [None]
  - SQUAMOUS CELL CARCINOMA [None]
